FAERS Safety Report 5796448-3 (Version None)
Quarter: 2008Q3

REPORT INFORMATION
  Report Type: 
  Country: None (occurrence: None)
  Receive Date: 20080701
  Receipt Date: 20080619
  Transmission Date: 20090109
  Serious: Yes (Hospitalization)
  Sender: FDA-Public Use
  Company Number: PHHY2008AR11415

PATIENT
  Age: 48 Year
  Sex: Male

DRUGS (1)
  1. DIOVAN [Suspect]
     Indication: HYPERTENSION
     Dosage: 2/DAY
     Dates: start: 20080604

REACTIONS (2)
  - SPINAL DISORDER [None]
  - SPINAL OPERATION [None]
